FAERS Safety Report 16794846 (Version 1)
Quarter: 2019Q3

REPORT INFORMATION
  Report Type: Other
  Country: HK (occurrence: HK)
  Receive Date: 20190911
  Receipt Date: 20190911
  Transmission Date: 20191005
  Serious: Yes (Other)
  Sender: FDA-Public Use
  Company Number: HK-EMD SERONO-9114912

PATIENT
  Age: 58 Year
  Sex: Female
  Weight: 75 kg

DRUGS (1)
  1. GLUCOPHAGE XR [Suspect]
     Active Substance: METFORMIN HYDROCHLORIDE
     Indication: DIABETES MELLITUS
     Dates: end: 2018

REACTIONS (2)
  - Condition aggravated [Recovered/Resolved]
  - Microalbuminuria [Recovered/Resolved]

NARRATIVE: CASE EVENT DATE: 201805
